FAERS Safety Report 8212043-0 (Version None)
Quarter: 2012Q1

REPORT INFORMATION
  Report Type: 
  Country: None (occurrence: None)
  Receive Date: 20120315
  Receipt Date: 20120302
  Transmission Date: 20120608
  Serious: Yes (Other)
  Sender: FDA-Public Use
  Company Number: PHHY2012JP018180

PATIENT
  Age: 40 Year
  Sex: Female

DRUGS (3)
  1. CYCLOSPORINE [Suspect]
     Indication: MIXED CONNECTIVE TISSUE DISEASE
     Dosage: 50 MG, UNK
     Route: 048
     Dates: start: 20070601
  2. CYCLOSPORINE [Suspect]
     Dosage: 50 MG, QD
     Route: 048
     Dates: start: 20110210, end: 20110619
  3. CYCLOSPORINE [Suspect]
     Dosage: 50 MG, UNK
     Route: 048
     Dates: start: 20110101

REACTIONS (2)
  - MATERNAL EXPOSURE DURING PREGNANCY [None]
  - SYSTEMIC LUPUS ERYTHEMATOSUS [None]
